FAERS Safety Report 5338263-0 (Version None)
Quarter: 2007Q2

REPORT INFORMATION
  Report Type: 
  Country: None (occurrence: None)
  Receive Date: 20070530
  Receipt Date: 20070521
  Transmission Date: 20071010
  Serious: Yes (Hospitalization)
  Sender: FDA-Public Use
  Company Number: US-KINGPHARMUSA00001-K200700620

PATIENT

DRUGS (7)
  1. ALTACE [Suspect]
     Indication: HYPERTENSION
     Dosage: UNK, UNK
     Route: 048
     Dates: start: 20050101, end: 20070302
  2. LEVAXIN [Concomitant]
     Dosage: 100 MCG, UNK
  3. BEHEPAN [Concomitant]
     Dosage: 1 MG, UNK
  4. TENORMIN [Concomitant]
     Dosage: 50 MG, UNK
  5. FUROSEMIDE [Concomitant]
     Dosage: 40 MG, UNK
  6. TROMBYL [Concomitant]
     Dosage: 75 MG, UNK
  7. ACETYLCYSTEINE [Concomitant]
     Dosage: 200 MG, UNK

REACTIONS (3)
  - BLOOD CREATININE INCREASED [None]
  - HYPERKALAEMIA [None]
  - UNEVALUABLE EVENT [None]
